FAERS Safety Report 6108000-0 (Version None)
Quarter: 2009Q1

REPORT INFORMATION
  Report Type: 
  Country: None (occurrence: None)
  Receive Date: 20090309
  Receipt Date: 20090205
  Transmission Date: 20090719
  Serious: No
  Sender: FDA-Public Use
  Company Number: US-BAYER-200910488BCC

PATIENT
  Age: 27 Year
  Sex: Male
  Weight: 152 kg

DRUGS (3)
  1. ALEVE [Suspect]
     Indication: EYE PAIN
     Dosage: UNIT DOSE: 220 MG
     Dates: start: 20090204
  2. ALEVE [Suspect]
     Dosage: UNIT DOSE: 220 MG
     Dates: start: 20090204
  3. ALEVE [Suspect]
     Dosage: UNIT DOSE: 220 MG
     Dates: start: 20090205

REACTIONS (3)
  - ABDOMINAL DISCOMFORT [None]
  - DIZZINESS [None]
  - NAUSEA [None]
